FAERS Safety Report 5246901-6 (Version None)
Quarter: 2007Q1

REPORT INFORMATION
  Report Type: 
  Country: None (occurrence: None)
  Receive Date: 20070226
  Receipt Date: 20070214
  Transmission Date: 20070707
  Serious: Yes (Other)
  Sender: FDA-Public Use
  Company Number: JP-PFIZER INC-2007010989

PATIENT
  Age: 69 Year
  Sex: Male

DRUGS (4)
  1. UNASYN [Suspect]
     Indication: PNEUMONIA
     Dosage: DAILY DOSE:3GRAM
     Route: 042
     Dates: start: 20070205, end: 20070205
  2. UNASYN [Suspect]
     Indication: PYREXIA
     Dosage: DAILY DOSE:6GRAM
     Route: 042
     Dates: start: 20070206, end: 20070207
  3. ZANTAC [Concomitant]
     Indication: GASTRIC ULCER
     Route: 048
  4. CALONAL [Concomitant]
     Route: 048
     Dates: start: 20070204, end: 20070204

REACTIONS (1)
  - GASTRIC ULCER [None]
